FAERS Safety Report 7718166-4 (Version None)
Quarter: 2011Q3

REPORT INFORMATION
  Report Type: 
  Country: None (occurrence: None)
  Receive Date: 20110830
  Receipt Date: 20110824
  Transmission Date: 20111222
  Serious: Yes (Other)
  Sender: FDA-Public Use
  Company Number: GB-ROCHE-798968

PATIENT
  Age: 22 Year
  Sex: Female
  Weight: 40 kg

DRUGS (1)
  1. ACTEMRA [Suspect]
     Route: 065

REACTIONS (4)
  - PRURITUS [None]
  - SKIN DISORDER [None]
  - HYPERTENSION [None]
  - EFFUSION [None]
